FAERS Safety Report 7370175-3 (Version None)
Quarter: 2011Q1

REPORT INFORMATION
  Report Type: 
  Country: None (occurrence: None)
  Receive Date: 20110323
  Receipt Date: 20110107
  Transmission Date: 20110831
  Serious: No
  Sender: FDA-Public Use
  Company Number: US-ASTRAZENECA-2011SE01457

PATIENT

DRUGS (11)
  1. CORGARD [Concomitant]
  2. SOTALOL HCL [Concomitant]
  3. TERAZOSIN HCL [Concomitant]
  4. ASPIRIN [Concomitant]
  5. PRANDIN [Concomitant]
  6. ACTOS [Concomitant]
  7. JANUVIA [Concomitant]
  8. LISINOPRIL [Suspect]
     Route: 048
  9. ZOLOFT [Concomitant]
  10. ALLEGRA [Concomitant]
  11. PRILOSEC OTC [Suspect]
     Route: 048

REACTIONS (4)
  - NECK PAIN [None]
  - DEPRESSION [None]
  - MUSCULOSKELETAL PAIN [None]
  - HEADACHE [None]
